FAERS Safety Report 8217722-7 (Version None)
Quarter: 2012Q1

REPORT INFORMATION
  Report Type: 
  Country: None (occurrence: None)
  Receive Date: 20120319
  Receipt Date: 20120305
  Transmission Date: 20120608
  Serious: No
  Sender: FDA-Public Use
  Company Number: US-B.I. PHARMACEUTICALS,INC./RIDGEFIELD-2012-BP-04120BP

PATIENT
  Age: 57 Year
  Sex: Male

DRUGS (2)
  1. PRILOSEC [Concomitant]
     Indication: GASTROOESOPHAGEAL REFLUX DISEASE
  2. ZANTAC [Suspect]
     Indication: DYSPEPSIA
     Dosage: 150 MG
     Route: 048
     Dates: start: 20120304, end: 20120304

REACTIONS (1)
  - DRUG INEFFECTIVE [None]
